FAERS Safety Report 10067405 (Version 2)
Quarter: 2014Q2

REPORT INFORMATION
  Report Type: Spontaneous
  Country: DE (occurrence: DE)
  Receive Date: 20140409
  Receipt Date: 20140409
  Transmission Date: 20141212
  Serious: Yes (Death, Hospitalization)
  Sender: FDA-Public Use
  Company Number: DE-ROCHE-1365878

PATIENT
  Age: 64 Year
  Sex: Male

DRUGS (2)
  1. KADCYLA [Suspect]
     Indication: BREAST CANCER METASTATIC
     Route: 042
     Dates: start: 20131008, end: 20140110
  2. DENOSUMAB [Concomitant]
     Indication: METASTASES TO BONE
     Route: 058
     Dates: start: 201302

REACTIONS (2)
  - Metastases to pancreas [Fatal]
  - Cholestasis [Not Recovered/Not Resolved]
